FAERS Safety Report 7503980-0 (Version None)
Quarter: 2011Q2

REPORT INFORMATION
  Report Type: 
  Country: None (occurrence: None)
  Receive Date: 20110524
  Receipt Date: 20110524
  Transmission Date: 20111010
  Serious: Yes (Other)
  Sender: FDA-Public Use
  Company Number: None

PATIENT
  Sex: Female
  Weight: 67.3 kg

DRUGS (2)
  1. PRAVASTATIN SODIUM [Suspect]
     Indication: BLOOD CHOLESTEROL INCREASED
     Dosage: PRAVASTATIN SODUM 20MG TAB 1 A DAY
     Dates: start: 20100312, end: 20100601
  2. LIPITOR [Suspect]
     Indication: BLOOD CHOLESTEROL INCREASED
     Dosage: LIPITOR 10MG TABLET P-D 1 A DAY
     Dates: start: 20090903, end: 20100101

REACTIONS (6)
  - NECK PAIN [None]
  - FATIGUE [None]
  - ABASIA [None]
  - MYALGIA [None]
  - ASTHENIA [None]
  - ABDOMINAL TENDERNESS [None]
